FAERS Safety Report 23465287 (Version 1)
Quarter: 2024Q1

REPORT INFORMATION
  Report Type: Spontaneous
  Country: DE (occurrence: DE)
  Receive Date: 20240201
  Receipt Date: 20240201
  Transmission Date: 20240409
  Serious: Yes (Hospitalization)
  Sender: FDA-Public Use
  Company Number: DE-MYLANLABS-2023M1037522

PATIENT
  Sex: Female

DRUGS (10)
  1. HULIO [Suspect]
     Active Substance: ADALIMUMAB-FKJP
     Indication: Rheumatoid arthritis
     Dosage: 40 MILLIGRAM, Q2W
     Route: 065
  2. HULIO [Suspect]
     Active Substance: ADALIMUMAB-FKJP
     Dosage: 40 MILLIGRAM
     Route: 065
     Dates: start: 201912
  3. METHOTREXATE [Suspect]
     Active Substance: METHOTREXATE
     Dosage: 10 MG, Q2W (10 MILLIGRAM, Q3W)
     Route: 065
  4. METHOTREXATE [Suspect]
     Active Substance: METHOTREXATE
     Dosage: 10 MG (10 MILLIGRAM)
     Route: 065
     Dates: start: 20200302
  5. METHOTREXATE [Suspect]
     Active Substance: METHOTREXATE
     Dosage: 10 MG (10 MILLIGRAM)
     Route: 065
     Dates: start: 20200604
  6. METHOTREXATE [Suspect]
     Active Substance: METHOTREXATE
     Dosage: 10 MG (10 MILLIGRAM)
     Route: 065
     Dates: start: 20201222
  7. METHOTREXATE [Suspect]
     Active Substance: METHOTREXATE
     Dosage: 10 MG (10 MILLIGRAM)
     Route: 065
     Dates: start: 20210531
  8. METHOTREXATE [Suspect]
     Active Substance: METHOTREXATE
     Dosage: 10 MG (10 MILLIGRAM)
     Route: 065
     Dates: start: 20211209
  9. METHOTREXATE [Suspect]
     Active Substance: METHOTREXATE
     Dosage: 10 MG (10 MILLIGRAM)
     Route: 065
     Dates: start: 20220815
  10. METHOTREXATE [Suspect]
     Active Substance: METHOTREXATE
     Indication: Rheumatoid arthritis
     Dosage: 15 MG (15 MILLIGRAM)
     Route: 065
     Dates: start: 20191202

REACTIONS (3)
  - Osteoporotic fracture [Unknown]
  - Osteoarthritis [Unknown]
  - Hip arthroplasty [Unknown]

NARRATIVE: CASE EVENT DATE: 20220622
